FAERS Safety Report 12524382 (Version 1)
Quarter: 2016Q3

REPORT INFORMATION
  Report Type: Report from Study
  Country: DE (occurrence: DE)
  Receive Date: 20160704
  Receipt Date: 20160704
  Transmission Date: 20161109
  Serious: Yes (Other)
  Sender: FDA-Public Use
  Company Number: PHHY2014DE110954

PATIENT
  Sex: Female
  Weight: 87 kg

DRUGS (5)
  1. AFINITOR [Suspect]
     Active Substance: EVEROLIMUS
     Dosage: 10 MG, QD
     Route: 048
     Dates: start: 20140721, end: 20140813
  2. AFINITOR [Suspect]
     Active Substance: EVEROLIMUS
     Dosage: 10 MG, EVERY 2 DAYS (10MG WITH 5 MG ALTERNATING)
     Route: 048
     Dates: start: 20150609, end: 20150730
  3. AFINITOR [Suspect]
     Active Substance: EVEROLIMUS
     Indication: BREAST CANCER
     Dosage: 10 MG, EVERY 2 DAY
     Route: 048
     Dates: start: 20140708, end: 20140720
  4. AFINITOR [Suspect]
     Active Substance: EVEROLIMUS
     Dosage: 10 MG, EVERY 2 DAYS (10MG WITH 5 MG ALTERNATING)
     Route: 048
     Dates: start: 20140814, end: 20150520
  5. EXEMESTAN HEXAL [Suspect]
     Active Substance: EXEMESTANE
     Indication: BREAST CANCER
     Dosage: 25 MG, QD
     Route: 048
     Dates: start: 20140708, end: 20150730

REACTIONS (8)
  - Oral mucosal blistering [Not Recovered/Not Resolved]
  - Infection [Recovered/Resolved]
  - Onychoclasis [Recovered/Resolved]
  - Myalgia [Recovered/Resolved]
  - Muscle rupture [Recovered/Resolved]
  - Stomatitis [Recovered/Resolved]
  - Cough [Recovered/Resolved]
  - Oral pain [Not Recovered/Not Resolved]

NARRATIVE: CASE EVENT DATE: 20140813
